FAERS Safety Report 4462823-2 (Version None)
Quarter: 2004Q3

REPORT INFORMATION
  Report Type: 
  Country: None (occurrence: None)
  Receive Date: 20040927
  Receipt Date: 20040920
  Transmission Date: 20050211
  Serious: Yes (Other)
  Sender: FDA-Public Use
  Company Number: SUSI-2004-00595

PATIENT
  Age: 50 Year
  Sex: Female

DRUGS (1)
  1. ADDERALL 15 [Suspect]
     Dosage: 15 MG

REACTIONS (2)
  - ADRENAL CARCINOMA [None]
  - METANEPHRINE URINE INCREASED [None]
